FAERS Safety Report 21457258 (Version 3)
Quarter: 2022Q4

REPORT INFORMATION
  Report Type: Report from Study
  Country: US (occurrence: None)
  Receive Date: 20221014
  Receipt Date: 20221207
  Transmission Date: 20230113
  Serious: Yes (Hospitalization)
  Sender: FDA-Public Use
  Company Number: US-ROCHE-3194114

PATIENT
  Age: 86 Year
  Sex: Male
  Weight: 66.7 kg

DRUGS (13)
  1. COBIMETINIB [Suspect]
     Active Substance: COBIMETINIB
     Indication: Chronic myelomonocytic leukaemia
     Route: 048
     Dates: start: 20220930, end: 20221004
  2. ALLOPURINOL [Concomitant]
     Active Substance: ALLOPURINOL
     Route: 048
  3. COBIMETINIB [Concomitant]
     Active Substance: COBIMETINIB
     Route: 048
  4. NORCO [Concomitant]
     Active Substance: ACETAMINOPHEN\HYDROCODONE BITARTRATE
     Dosage: 5-325 MG PER TABLET?TAKE 1 TABLET BY MOUTH EVERY 6 (SIX) HOURS AS NEEDED FOR PAIN
  5. LANOLIN [Concomitant]
     Active Substance: LANOLIN
     Dosage: PLACE 1 DROP INTO BOTH EYES DAILY AS NEEDED.
     Route: 047
  6. MINERAL OIL [Concomitant]
     Active Substance: MINERAL OIL
     Dosage: PLACE 1 DROP INTO BOTH EYES DAILY AS NEEDED.
     Route: 047
  7. PETROLATUM [Concomitant]
     Active Substance: PETROLATUM
     Dosage: PLACE 1 DROP INTO BOTH EYES DAILY AS NEEDED.
     Route: 047
  8. LOPERAMIDE [Concomitant]
     Active Substance: LOPERAMIDE
     Dosage: 2 MG CAPSULE TAKE 2 MG BY MOUTH 2 (TWO) TIMES DAILY. TAKE 1 CAPSULE BY MOUTH 2 TIMES A DAY.
     Route: 048
  9. OMEPRAZOLE [Concomitant]
     Active Substance: OMEPRAZOLE
     Route: 048
  10. PROCHLORPERAZINE [Concomitant]
     Active Substance: PROCHLORPERAZINE
     Dosage: 10 MG TABLET TAKE 10 MG BY MOUTH EVERY 6 (SIX) HOURS AS NEEDED FOR NAUSEA.
     Route: 048
  11. ZOLPIDEM [Concomitant]
     Active Substance: ZOLPIDEM TARTRATE
     Dosage: 5 MG TABLET TAKE 1 TABLET (5 MG TOTAL) BY MOUTH NIGHTLY AS NEEDED FOR INSOMNIA.
     Route: 048
  12. ONDANSETRON [Concomitant]
     Active Substance: ONDANSETRON
     Dosage: 4 MG TABLET TAKE 4 MG BY MOUTH EVERY 8 (EIGHT) HOURS AS NEEDED FOR NAUSEA
     Route: 048
  13. ACETAMINOPHEN [Concomitant]
     Active Substance: ACETAMINOPHEN
     Indication: Pyrexia
     Dosage: 500 MG TABLET TAKE 500 MG BY MOUTH DAILY AS NEEDED FOR FEVER.
     Route: 048

REACTIONS (1)
  - Colitis [Recovered/Resolved]

NARRATIVE: CASE EVENT DATE: 20221002
